FAERS Safety Report 4683922-6 (Version None)
Quarter: 2005Q2

REPORT INFORMATION
  Report Type: 
  Country: None (occurrence: None)
  Receive Date: 20050607
  Receipt Date: 20050310
  Transmission Date: 20051028
  Serious: Yes (Life-Threatening, Hospitalization, Other)
  Sender: FDA-Public Use
  Company Number: US-MERCK-0503USA02058

PATIENT
  Age: 70 Year
  Sex: Male
  Weight: 87 kg

DRUGS (3)
  1. VIOXX [Suspect]
     Indication: ARTHRITIS
     Route: 048
     Dates: start: 20010101, end: 20040101
  2. LISINOPRIL-BC [Concomitant]
     Route: 065
  3. ATENOLOL MSD [Concomitant]
     Route: 048

REACTIONS (16)
  - ACUTE CORONARY SYNDROME [None]
  - ARTHROPATHY [None]
  - BENIGN PROSTATIC HYPERPLASIA [None]
  - DYSCHEZIA [None]
  - DYSPHAGIA [None]
  - DYSPNOEA [None]
  - EXTRASYSTOLES [None]
  - FLUSHING [None]
  - GASTROOESOPHAGEAL REFLUX DISEASE [None]
  - HEADACHE [None]
  - HEART RATE INCREASED [None]
  - HYPERTRIGLYCERIDAEMIA [None]
  - INFLUENZA [None]
  - MYOCARDIAL INFARCTION [None]
  - PALPITATIONS [None]
  - RECTAL HAEMORRHAGE [None]
